FAERS Safety Report 6274279-8 (Version None)
Quarter: 2009Q3

REPORT INFORMATION
  Report Type: 
  Country: None (occurrence: None)
  Receive Date: 20090720
  Receipt Date: 20090709
  Transmission Date: 20100115
  Serious: Yes (Other)
  Sender: FDA-Public Use
  Company Number: AU-WYE-H10188409

PATIENT
  Age: 88 Year
  Sex: Male

DRUGS (1)
  1. CORDARONE [Suspect]
     Dosage: 100-200MG TWO OR THREE TIMES PER WEEK
     Dates: end: 20060101

REACTIONS (3)
  - NEUROPATHY PERIPHERAL [None]
  - SQUAMOUS CELL CARCINOMA OF SKIN [None]
  - THYROID DISORDER [None]
